FAERS Safety Report 4372356-X (Version None)
Quarter: 2004Q2

REPORT INFORMATION
  Report Type: 
  Country: None (occurrence: None)
  Receive Date: 20040602
  Receipt Date: 20040517
  Transmission Date: 20050107
  Serious: Yes (Life-Threatening, Other)
  Sender: FDA-Public Use
  Company Number: 2004214446JP

PATIENT
  Age: 35 Year
  Sex: Female
  Weight: 45 kg

DRUGS (11)
  1. DOXORUBICIN HYDROCHLORIDE [Suspect]
     Indication: BONE SARCOMA
     Dosage: SEE IMAGE
     Route: 042
     Dates: start: 20020716, end: 20020717
  2. DOXORUBICIN HYDROCHLORIDE [Suspect]
     Indication: BONE SARCOMA
     Dosage: SEE IMAGE
     Route: 042
     Dates: start: 20020827, end: 20020828
  3. CYCLOPHOSPHAMIDE [Suspect]
     Indication: BONE SARCOMA
     Dosage: SEE IMAGE
     Route: 042
     Dates: start: 20020716, end: 20020717
  4. CYCLOPHOSPHAMIDE [Suspect]
     Indication: BONE SARCOMA
     Dosage: SEE IMAGE
     Route: 042
     Dates: start: 20020827, end: 20020828
  5. VINCRISTINE SULPHATE (VINCRISTINE SULFATE) SOLUTION, STERILE [Suspect]
     Indication: BONE SARCOMA
     Dosage: SEE IMAGE
     Route: 042
     Dates: start: 20020716, end: 20020717
  6. VINCRISTINE SULPHATE (VINCRISTINE SULFATE) SOLUTION, STERILE [Suspect]
     Indication: BONE SARCOMA
     Dosage: SEE IMAGE
     Route: 042
     Dates: start: 20020827, end: 20020827
  7. DEXAPOSTAFEN COMPRIMIDOS (DEXAMETHASONE) TABLET [Suspect]
     Indication: PROPHYLAXIS OF NAUSEA AND VOMITING
     Dosage: 6 MG, CYCLE 2, IV
     Route: 042
     Dates: start: 20020827, end: 20020828
  8. KYTRIL [Concomitant]
  9. SOLITA-T1 INJECTION [Concomitant]
  10. KCL-RETARD [Concomitant]
  11. MEYLON [Concomitant]

REACTIONS (9)
  - BONE MARROW DEPRESSION [None]
  - DUODENAL ULCER HAEMORRHAGE [None]
  - GASTROINTESTINAL DISORDER [None]
  - HAEMATEMESIS [None]
  - IMPAIRED HEALING [None]
  - MELAENA [None]
  - OEDEMA [None]
  - POSTOPERATIVE ADHESION [None]
  - SHOCK HAEMORRHAGIC [None]
